FAERS Safety Report 7524572-3 (Version None)
Quarter: 2011Q2

REPORT INFORMATION
  Report Type: 
  Country: None (occurrence: None)
  Receive Date: 20110601
  Receipt Date: 20110601
  Transmission Date: 20111010
  Serious: Yes (Hospitalization)
  Sender: FDA-Public Use
  Company Number: None

PATIENT
  Sex: Male
  Weight: 54.5 kg

DRUGS (6)
  1. CARBOPLATIN [Suspect]
     Indication: TONGUE NEOPLASM MALIGNANT STAGE UNSPECIFIED
     Dosage: DAILY X 5 DAYS IV
     Route: 042
     Dates: start: 20100524
  2. SITAGLIPTIN [Concomitant]
  3. PIOGLITAZONE [Concomitant]
  4. GLIPIZIDE [Concomitant]
  5. PACLITAXEL [Suspect]
     Indication: TONGUE NEOPLASM MALIGNANT STAGE UNSPECIFIED
     Dosage: IV
     Route: 042
     Dates: start: 20100301
  6. SIMVASTATIN [Concomitant]

REACTIONS (4)
  - BLOOD PRESSURE DECREASED [None]
  - HEART RATE INCREASED [None]
  - OXYGEN SATURATION DECREASED [None]
  - SYNCOPE [None]
